FAERS Safety Report 4616873-3 (Version None)
Quarter: 2005Q1

REPORT INFORMATION
  Report Type: 
  Country: None (occurrence: None)
  Receive Date: 20050321
  Receipt Date: 20021009
  Transmission Date: 20050727
  Serious: Yes (Death)
  Sender: FDA-Public Use
  Company Number: 4378

PATIENT
  Age: 12 Year
  Sex: Female

DRUGS (6)
  1. VINCRISTINE [Suspect]
     Indication: LYMPHOCYTIC LEUKAEMIA
     Dosage: 2 MG ONCE IT
  2. PREDNISONE [Concomitant]
  3. DAUNORUBICIN HYDROCHLORIDE [Concomitant]
  4. METHOTREXATE [Concomitant]
  5. HYDROCORTISONE [Concomitant]
  6. CYTOSINE ARABINOSIDE [Concomitant]

REACTIONS (33)
  - ANORECTAL DISORDER [None]
  - APNOEIC ATTACK [None]
  - AREFLEXIA [None]
  - COMA [None]
  - COMMUNICATION DISORDER [None]
  - CONFUSIONAL STATE [None]
  - CONSTIPATION [None]
  - CSF GLUCOSE INCREASED [None]
  - CSF PROTEIN INCREASED [None]
  - DEAFNESS [None]
  - DYSARTHRIA [None]
  - DYSPHAGIA [None]
  - EXTENSOR PLANTAR RESPONSE [None]
  - FACIAL PARESIS [None]
  - GENERAL PHYSICAL HEALTH DETERIORATION [None]
  - GUILLAIN-BARRE SYNDROME [None]
  - HICCUPS [None]
  - HYPOREFLEXIA [None]
  - LETHARGY [None]
  - MEDICATION ERROR [None]
  - NERVOUS SYSTEM DISORDER [None]
  - NYSTAGMUS [None]
  - PARAESTHESIA [None]
  - PARALYSIS [None]
  - PARALYSIS FLACCID [None]
  - PARESIS [None]
  - PARESIS CRANIAL NERVE [None]
  - QUADRIPARESIS [None]
  - SENSORY LOSS [None]
  - SOMNOLENCE [None]
  - SPINAL CORD DISORDER [None]
  - TOXIC INDUCED ENCEPHALOPATHY [None]
  - URINARY RETENTION [None]
